FAERS Safety Report 8618409-9 (Version None)
Quarter: 2012Q3

REPORT INFORMATION
  Report Type: 
  Country: None (occurrence: None)
  Receive Date: 20120824
  Receipt Date: 20120815
  Transmission Date: 20120928
  Serious: No
  Sender: FDA-Public Use
  Company Number: US-BIOGENIDEC-2012BI030898

PATIENT

DRUGS (5)
  1. AVONEX [Suspect]
     Route: 030
     Dates: start: 20040328
  2. AVONEX [Suspect]
     Route: 030
     Dates: start: 20101109, end: 20101130
  3. AVONEX [Suspect]
     Indication: MULTIPLE SCLEROSIS
     Route: 030
     Dates: start: 19990101, end: 20020902
  4. AVONEX [Suspect]
     Route: 030
     Dates: start: 20120724
  5. AVONEX [Suspect]
     Route: 030
     Dates: start: 20120508, end: 20120717

REACTIONS (5)
  - CYSTITIS [None]
  - THERMAL BURN [None]
  - PYREXIA [None]
  - OPTIC NEURITIS [None]
  - NEURALGIA [None]
